FAERS Safety Report 18065145 (Version 1)
Quarter: 2020Q3

REPORT INFORMATION
  Report Type: Spontaneous
  Country: US (occurrence: US)
  Receive Date: 20200724
  Receipt Date: 20200724
  Transmission Date: 20201103
  Serious: No
  Sender: FDA-Public Use
  Company Number: US-BAYER-2020-150180

PATIENT
  Sex: Female

DRUGS (4)
  1. CLARITIN?D 12 HOUR [Suspect]
     Active Substance: LORATADINE\PSEUDOEPHEDRINE SULFATE
     Indication: ALLERGIC RESPIRATORY SYMPTOM
     Dosage: 1 DF, OM
     Route: 048
     Dates: start: 202007, end: 20200723
  2. CLARITIN?D 12 HOUR [Suspect]
     Active Substance: LORATADINE\PSEUDOEPHEDRINE SULFATE
     Indication: NASOPHARYNGITIS
  3. WELLBUTRIN [Concomitant]
     Active Substance: BUPROPION HYDROCHLORIDE
  4. ZYRTEC [Suspect]
     Active Substance: CETIRIZINE HYDROCHLORIDE
     Dosage: UNK

REACTIONS (2)
  - Somnolence [Unknown]
  - Drug ineffective [Unknown]
